FAERS Safety Report 10618191 (Version 1)
Quarter: 2014Q4

REPORT INFORMATION
  Report Type: Spontaneous
  Country: US (occurrence: US)
  Receive Date: 20141202
  Receipt Date: 20141202
  Transmission Date: 20150529
  Serious: Yes (Death)
  Sender: FDA-Public Use
  Company Number: US-ASTRAZENECA-2014SE90296

PATIENT
  Age: 46 Year
  Sex: Male

DRUGS (1)
  1. ATENOLOL. [Suspect]
     Active Substance: ATENOLOL
     Route: 048
     Dates: start: 198707

REACTIONS (5)
  - Fatigue [Unknown]
  - Death [Fatal]
  - Feeling abnormal [Unknown]
  - Asthenia [Unknown]
  - Listless [Unknown]

NARRATIVE: CASE EVENT DATE: 1987
